FAERS Safety Report 5084406-6 (Version None)
Quarter: 2006Q3

REPORT INFORMATION
  Report Type: 
  Country: None (occurrence: None)
  Receive Date: 20060821
  Receipt Date: 20060808
  Transmission Date: 20061208
  Serious: Yes (Hospitalization)
  Sender: FDA-Public Use
  Company Number: SG-AMGEN-US189752

PATIENT
  Sex: Female
  Weight: 24.6 kg

DRUGS (1)
  1. NEUPOGEN [Suspect]
     Indication: AGRANULOCYTOSIS
     Route: 058
     Dates: start: 20060728, end: 20060730

REACTIONS (2)
  - PYREXIA [None]
  - RASH [None]
